FAERS Safety Report 7420836-2 (Version None)
Quarter: 2011Q2

REPORT INFORMATION
  Report Type: 
  Country: None (occurrence: None)
  Receive Date: 20110418
  Receipt Date: 20110411
  Transmission Date: 20111010
  Serious: Yes (Other)
  Sender: FDA-Public Use
  Company Number: US-NAPPMUNDI-USA-2010-0056104

PATIENT
  Sex: Female

DRUGS (4)
  1. OXYCONTIN [Suspect]
     Indication: PAIN
     Dosage: 240 MG, TID
     Dates: start: 20101002
  2. COMPAZINE [Concomitant]
     Indication: NAUSEA
  3. OXYCONTIN [Suspect]
     Indication: LYMPHOEDEMA
  4. OXYCONTIN [Suspect]
     Indication: NEUROPATHY PERIPHERAL

REACTIONS (10)
  - SUICIDAL IDEATION [None]
  - THERAPEUTIC RESPONSE DELAYED [None]
  - PAIN [None]
  - DRUG EFFECT DECREASED [None]
  - INADEQUATE ANALGESIA [None]
  - LACRIMATION INCREASED [None]
  - CHILLS [None]
  - RHINORRHOEA [None]
  - NAUSEA [None]
  - YAWNING [None]
